FAERS Safety Report 6683138-8 (Version None)
Quarter: 2010Q2

REPORT INFORMATION
  Report Type: 
  Country: None (occurrence: None)
  Receive Date: 20100415
  Receipt Date: 20100412
  Transmission Date: 20101027
  Serious: Yes (Other)
  Sender: FDA-Public Use
  Company Number: CHPA2010US06637

PATIENT
  Sex: Female

DRUGS (1)
  1. PREVACID 24 HR [Suspect]
     Indication: DYSPEPSIA
     Dosage: UNK
     Route: 048

REACTIONS (7)
  - ABDOMINAL PAIN UPPER [None]
  - FEELING ABNORMAL [None]
  - GASTRIC OPERATION [None]
  - GASTRIC ULCER HAEMORRHAGE [None]
  - HAEMATEMESIS [None]
  - HAEMORRHAGE [None]
  - OFF LABEL USE [None]
